FAERS Safety Report 6237366-6 (Version None)
Quarter: 2009Q2

REPORT INFORMATION
  Report Type: 
  Country: None (occurrence: None)
  Receive Date: 20090619
  Receipt Date: 20090608
  Transmission Date: 20091009
  Serious: Yes (Other)
  Sender: FDA-Public Use
  Company Number: US-PFIZER INC-2009225321

PATIENT
  Sex: Female
  Weight: 72.562 kg

DRUGS (18)
  1. CHANTIX [Suspect]
     Indication: SMOKING CESSATION THERAPY
     Dosage: EVERY DAY
     Dates: start: 20090403, end: 20090401
  2. LEXAPRO [Concomitant]
     Indication: DEPRESSION
     Dosage: 1 1/2 TABLETS DAILY
  3. LEXAPRO [Concomitant]
     Dosage: 2 DAILY
     Dates: start: 20090101
  4. PROMETHAZINE [Concomitant]
     Dosage: UNK
  5. MUCINEX [Concomitant]
     Dosage: UNK
  6. TYLENOL (CAPLET) [Concomitant]
     Dosage: UNK
  7. XANAX [Concomitant]
     Indication: ANXIETY
     Dosage: UNK
  8. IMODIUM [Concomitant]
     Dosage: UNK
  9. OXYCODONE HYDROCHLORIDE [Concomitant]
     Dosage: UNK
  10. LYRICA [Concomitant]
     Dosage: UNK
  11. NEXIUM [Concomitant]
     Indication: GASTRIC DISORDER
     Dosage: UNK
  12. NEXIUM [Concomitant]
     Indication: OESOPHAGEAL DISORDER
  13. RANITIDINE [Concomitant]
     Indication: GASTRIC DISORDER
     Dosage: UNK
  14. RANITIDINE [Concomitant]
     Indication: OESOPHAGEAL DISORDER
  15. XALATAN [Concomitant]
     Dosage: UNK
  16. SIMVASTATIN [Concomitant]
     Dosage: UNK
  17. COMBIVENT [Concomitant]
     Dosage: UNK
  18. ADVAIR HFA [Concomitant]
     Dosage: UNK

REACTIONS (5)
  - DEPRESSION [None]
  - DRUG INEFFECTIVE [None]
  - LUNG DISORDER [None]
  - PERIPHERAL ARTERIAL OCCLUSIVE DISEASE [None]
  - WHEEZING [None]
